FAERS Safety Report 7476771-7 (Version None)
Quarter: 2011Q2

REPORT INFORMATION
  Report Type: 
  Country: None (occurrence: None)
  Receive Date: 20110512
  Receipt Date: 20110422
  Transmission Date: 20111010
  Serious: No
  Sender: FDA-Public Use
  Company Number: US-B.I. PHARMACEUTICALS,INC./RIDGEFIELD-2011-BP-06580BP

PATIENT
  Sex: Female

DRUGS (13)
  1. COMBIVENT [Concomitant]
     Indication: CHRONIC OBSTRUCTIVE PULMONARY DISEASE
     Dates: start: 20050101
  2. CLONAZEPAM [Concomitant]
     Indication: ANXIETY
  3. DUONEB [Concomitant]
     Indication: CHRONIC OBSTRUCTIVE PULMONARY DISEASE
  4. SPIRIVA [Suspect]
     Indication: CHRONIC OBSTRUCTIVE PULMONARY DISEASE
     Dosage: 18 MCG
     Route: 055
     Dates: start: 20060101
  5. SYMBICORT [Concomitant]
     Indication: CHRONIC OBSTRUCTIVE PULMONARY DISEASE
  6. ACTONEL [Concomitant]
     Indication: OSTEOPOROSIS
  7. EVISTA [Concomitant]
     Indication: OSTEOPOROSIS
  8. ALPRAZOLAM [Concomitant]
     Indication: ANXIETY
     Dates: start: 20050101
  9. PREDNISONE [Concomitant]
     Indication: CHRONIC OBSTRUCTIVE PULMONARY DISEASE
  10. PROMETHAZINE [Concomitant]
     Indication: NAUSEA
  11. FLEXERIL [Concomitant]
     Indication: TEMPOROMANDIBULAR JOINT SYNDROME
  12. DULERA TABLET [Concomitant]
     Indication: CHRONIC OBSTRUCTIVE PULMONARY DISEASE
  13. ALBUTEROL [Concomitant]
     Indication: CHRONIC OBSTRUCTIVE PULMONARY DISEASE

REACTIONS (4)
  - POST HERPETIC NEURALGIA [None]
  - DRUG INEFFECTIVE [None]
  - HERPES ZOSTER [None]
  - HYPERTENSION [None]
